FAERS Safety Report 7955959-2 (Version None)
Quarter: 2011Q4

REPORT INFORMATION
  Report Type: 
  Country: None (occurrence: None)
  Receive Date: 20111205
  Receipt Date: 20111129
  Transmission Date: 20120403
  Serious: No
  Sender: FDA-Public Use
  Company Number: US-BIOGENIDEC-2011BI045470

PATIENT
  Sex: Female

DRUGS (8)
  1. FLONASE [Concomitant]
     Indication: ALLERGIC SINUSITIS
  2. TYSABRI [Suspect]
     Indication: MULTIPLE SCLEROSIS
     Route: 042
     Dates: start: 20100924
  3. CRESTOR [Concomitant]
     Indication: BLOOD CHOLESTEROL INCREASED
  4. PRESTIQUE [Concomitant]
     Indication: DEPRESSION
  5. AMPYRA [Concomitant]
     Indication: DYSSTASIA
  6. VOLTAREN [Concomitant]
     Indication: ARTHRALGIA
  7. FLUOXETINE [Concomitant]
     Indication: DEPRESSION
  8. AMPYRA [Concomitant]
     Indication: GAIT DISTURBANCE

REACTIONS (8)
  - GAIT DISTURBANCE [None]
  - DYSSTASIA [None]
  - INGROWING NAIL [None]
  - DRUG INTERACTION [None]
  - MENTAL IMPAIRMENT [None]
  - MUSCLE SPASMS [None]
  - HEADACHE [None]
  - DIZZINESS [None]
